FAERS Safety Report 7491970-6 (Version None)
Quarter: 2011Q2

REPORT INFORMATION
  Report Type: 
  Country: None (occurrence: None)
  Receive Date: 20110511
  Receipt Date: 20110502
  Transmission Date: 20111010
  Serious: Yes (Hospitalization)
  Sender: FDA-Public Use
  Company Number: B0717870A

PATIENT
  Age: 82 Year
  Sex: Female

DRUGS (3)
  1. DIGOXIN [Suspect]
     Indication: PRODUCT USED FOR UNKNOWN INDICATION
  2. METOPROLOL TARTRATE [Concomitant]
  3. DRONEDARONE (DRONEDARONE) [Suspect]
     Indication: PRODUCT USED FOR UNKNOWN INDICATION

REACTIONS (9)
  - PALPITATIONS [None]
  - BLOOD MAGNESIUM DECREASED [None]
  - NODAL ARRHYTHMIA [None]
  - TOXICITY TO VARIOUS AGENTS [None]
  - ATRIAL FIBRILLATION [None]
  - DIZZINESS [None]
  - DYSPNOEA EXERTIONAL [None]
  - ANGINA UNSTABLE [None]
  - CORONARY ARTERY STENOSIS [None]
